FAERS Safety Report 4876732-8 (Version None)
Quarter: 2006Q1

REPORT INFORMATION
  Report Type: 
  Country: None (occurrence: None)
  Receive Date: 20060110
  Receipt Date: 20051230
  Transmission Date: 20060701
  Serious: Yes (Hospitalization, Disabling)
  Sender: FDA-Public Use
  Company Number: US-MERCK-0601USA00153

PATIENT
  Age: 37 Year
  Sex: Female
  Weight: 136 kg

DRUGS (5)
  1. VIOXX [Suspect]
     Indication: PAIN
     Route: 048
  2. VIOXX [Suspect]
     Route: 048
  3. VIOXX [Suspect]
     Route: 048
  4. VIOXX [Suspect]
     Route: 048
  5. TYLENOL [Concomitant]
     Route: 065

REACTIONS (3)
  - ATRIAL FLUTTER [None]
  - CARDIOVASCULAR DISORDER [None]
  - THROMBOSIS [None]
